FAERS Safety Report 5613711-7 (Version None)
Quarter: 2008Q1

REPORT INFORMATION
  Report Type: 
  Country: None (occurrence: None)
  Receive Date: 20080205
  Receipt Date: 20080125
  Transmission Date: 20080703
  Serious: Yes (Death)
  Sender: FDA-Public Use
  Company Number: JP-NOVOPROD-245334

PATIENT

DRUGS (5)
  1. NOVOSEVEN [Suspect]
     Indication: ACQUIRED HAEMOPHILIA
     Dosage: 4.8 MG, SINGLE
     Route: 042
     Dates: start: 20050701, end: 20050701
  2. NOVOSEVEN [Suspect]
     Dosage: 4.8 MG, SINGLE
     Dates: start: 20050702, end: 20050702
  3. NOVOSEVEN [Suspect]
     Dosage: 4.8 MG, AT 2+4+11PM
     Dates: start: 20050703, end: 20050703
  4. BLOOD COAGULATION FACTORS [Concomitant]
     Dosage: 500-2000 IU
     Route: 042
     Dates: start: 20050403, end: 20050411
  5. PREDONINE [Concomitant]
     Indication: ACQUIRED HAEMOPHILIA WITH ANTI FVIII, XI, OR XIII
     Dosage: 50 MG, UNK
     Dates: start: 20050608, end: 20050704

REACTIONS (3)
  - ANAEMIA [None]
  - DRUG INEFFECTIVE [None]
  - LOWER GASTROINTESTINAL HAEMORRHAGE [None]
